FAERS Safety Report 11996085 (Version 2)
Quarter: 2016Q1

REPORT INFORMATION
  Report Type: Spontaneous
  Country: US (occurrence: US)
  Receive Date: 20160203
  Receipt Date: 20160317
  Transmission Date: 20160526
  Serious: Yes (Disabling)
  Sender: FDA-Public Use
  Company Number: US-009507513-1602USA000555

PATIENT
  Age: 65 Year
  Sex: Female

DRUGS (3)
  1. ZETIA [Concomitant]
     Active Substance: EZETIMIBE
     Dosage: 70 MG, QW
     Dates: start: 201506
  2. FOSAMAX [Suspect]
     Active Substance: ALENDRONATE SODIUM
     Dosage: 70 MG, QW
     Route: 048
     Dates: start: 201506, end: 20160122
  3. VITAMIN D [Concomitant]
     Active Substance: CHOLECALCIFEROL

REACTIONS (8)
  - Rash erythematous [Recovering/Resolving]
  - Nerve compression [Not Recovered/Not Resolved]
  - Peripheral swelling [Recovered/Resolved]
  - Gait disturbance [Not Recovered/Not Resolved]
  - Asthenia [Not Recovered/Not Resolved]
  - Abdominal distension [Not Recovered/Not Resolved]
  - Bone pain [Not Recovered/Not Resolved]
  - Arthralgia [Not Recovered/Not Resolved]

NARRATIVE: CASE EVENT DATE: 201508
